FAERS Safety Report 8591161 (Version 4)
Quarter: 2012Q4

REPORT INFORMATION
  Report Type: 
  Country: US (occurrence: US)
  Receive Date: 20120601
  Receipt Date: 20121024
  Transmission Date: 20130627
  Serious: Yes (Hospitalization, Disabling, Other)
  Sender: FDA-Public Use
  Company Number: US-009507513-1205USA04997

PATIENT

DRUGS (9)
  1. FOSAMAX [Suspect]
     Indication: OSTEOPOROSIS PROPHYLAXIS
     Route: 048
     Dates: start: 20001031, end: 201001
  2. FOSAMAX [Suspect]
     Indication: OSTEOPOROSIS PROPHYLAXIS
     Dosage: 10 mg daily
     Route: 048
     Dates: start: 1999
  3. FOSAMAX [Suspect]
     Dosage: 70 mg weekly
  4. FOSAMAX PLUS D [Suspect]
     Indication: OSTEOPOROSIS PROPHYLAXIS
     Dosage: 70-2800 qw
     Route: 048
     Dates: start: 1999, end: 201001
  5. ASPIRIN [Concomitant]
  6. HYDROCHLOROTHIAZIDE [Concomitant]
  7. NAPROSYN [Concomitant]
  8. GLUCOSAMINE [Concomitant]
  9. ALENDRONATE SODIUM [Suspect]
     Dosage: 70 mg, qw

REACTIONS (23)
  - Femur fracture [Unknown]
  - Intramedullary rod insertion [Unknown]
  - Femur fracture [Unknown]
  - Femur fracture [Unknown]
  - Intramedullary rod insertion [Unknown]
  - Osteoporosis [Unknown]
  - Medical device removal [Unknown]
  - Medical device removal [Unknown]
  - Hypertension [Unknown]
  - Lipids increased [Unknown]
  - Blood pressure decreased [Unknown]
  - Bursitis [Unknown]
  - Device failure [Unknown]
  - Iliotibial band syndrome [Unknown]
  - Patellofemoral pain syndrome [Unknown]
  - Device failure [Unknown]
  - Carpal tunnel syndrome [Unknown]
  - Arthropathy [Unknown]
  - Osteosclerosis [Unknown]
  - Intervertebral disc space narrowing [Unknown]
  - Muscle strain [Unknown]
  - Fall [Unknown]
  - Fall [Unknown]
